FAERS Safety Report 7450341-9 (Version None)
Quarter: 2011Q2

REPORT INFORMATION
  Report Type: 
  Country: None (occurrence: None)
  Receive Date: 20110422
  Receipt Date: 20110411
  Transmission Date: 20111010
  Serious: Yes (Death, Hospitalization)
  Sender: FDA-Public Use
  Company Number: 2011-0425

PATIENT
  Age: 83 Year
  Sex: Male
  Weight: 54 kg

DRUGS (8)
  1. LEVOTHYROX (LEVOTHYROXINE SODIUM) [Concomitant]
  2. VITABACT (PICLOXYDINE DIHYDROCHLORIDE) [Concomitant]
  3. FORTIMEL (FORTIMEL) [Concomitant]
  4. SOMATULINE DEPOT [Suspect]
     Indication: NEUROENDOCRINE CARCINOMA OF THE SKIN
     Dosage: 20 MG (20 MG,1 IN 15 D),SUBCUTANEOUS
     Route: 058
     Dates: start: 20110117, end: 20110201
  5. FLUIDABAK (POLYVIDONE) [Concomitant]
  6. ASPEGIC 1000 [Concomitant]
  7. VITAMINE A (RETINOL) [Concomitant]
  8. SULFARLEM (ANETHOLE TRITHIONE) [Concomitant]

REACTIONS (17)
  - MALAISE [None]
  - DYSKINESIA [None]
  - ELECTROENCEPHALOGRAM ABNORMAL [None]
  - GENERAL PHYSICAL HEALTH DETERIORATION [None]
  - LUNG NEOPLASM MALIGNANT [None]
  - NEUROENDOCRINE CARCINOMA OF THE SKIN [None]
  - TREMOR [None]
  - INCORRECT DOSE ADMINISTERED [None]
  - ORTHOSTATIC HYPOTENSION [None]
  - DYSPNOEA [None]
  - LOSS OF CONSCIOUSNESS [None]
  - MUSCULAR WEAKNESS [None]
  - INCORRECT ROUTE OF DRUG ADMINISTRATION [None]
  - BLOOD THYROID STIMULATING HORMONE DECREASED [None]
  - CLONUS [None]
  - PULMONARY CONGESTION [None]
  - NEOPLASM PROGRESSION [None]
